FAERS Safety Report 17897275 (Version 1)
Quarter: 2020Q2

REPORT INFORMATION
  Report Type: Spontaneous
  Country: DE (occurrence: DE)
  Receive Date: 20200615
  Receipt Date: 20200615
  Transmission Date: 20200714
  Serious: Yes (Other)
  Sender: FDA-Public Use
  Company Number: DE-MYLANLABS-2020M1055011

PATIENT
  Sex: Male

DRUGS (16)
  1. VALSARTAN. [Suspect]
     Active Substance: VALSARTAN
     Dosage: 320 MILLIGRAM, QD (ABZ)
     Dates: start: 20170103
  2. VALSACOR [Suspect]
     Active Substance: VALSARTAN
     Indication: PRODUCT USED FOR UNKNOWN INDICATION
     Dosage: 320 MILLIGRAM, QD (TAD PHARMA)
     Dates: start: 20160711
  3. VALSACOR [Suspect]
     Active Substance: VALSARTAN
     Dosage: 320 MILLIGRAM, QD (TAD PHARMA)
     Dates: start: 20170714
  4. VALSACOR [Suspect]
     Active Substance: VALSARTAN
     Dosage: 320 MILLIGRAM, QD (TAD PHARMA)
     Dates: start: 20171101
  5. VALSARTAN DURA 320 MG FILMTABLETTEN [Suspect]
     Active Substance: VALSARTAN
     Dosage: 320 MILLIGRAM, QD
     Dates: start: 20160107
  6. VALSARTAN DURA 320 MG FILMTABLETTEN [Suspect]
     Active Substance: VALSARTAN
     Dosage: 320 MILLIGRAM, QD
     Dates: start: 20160413
  7. VALSACOR [Suspect]
     Active Substance: VALSARTAN
     Dosage: 320MG/25MG, QD (TAD PHARMA)
     Dates: start: 20190312
  8. VALSARTAN. [Suspect]
     Active Substance: VALSARTAN
     Indication: PRODUCT USED FOR UNKNOWN INDICATION
     Dosage: 320 MILLIGRAM, QD (ABZ)
     Dates: start: 20150610
  9. VALSACOR [Suspect]
     Active Substance: VALSARTAN
     Dosage: 320 MILLIGRAM, QD (TAD PHARMA)
     Dates: start: 20180312
  10. VALSACOR [Suspect]
     Active Substance: VALSARTAN
     Indication: PRODUCT USED FOR UNKNOWN INDICATION
     Dosage: 320MG/25MG, QD (TAD PHARMA)
     Dates: start: 20180713
  11. VALSARTAN. [Suspect]
     Active Substance: VALSARTAN
     Dosage: 320 MILLIGRAM, QD (ABZ)
     Dates: start: 20170421
  12. VALSACOR [Suspect]
     Active Substance: VALSARTAN
     Dosage: 320MG/25MG, QD (TAD PHARMA)
     Dates: start: 20181105
  13. VALSARTAN DURA 320 MG FILMTABLETTEN [Suspect]
     Active Substance: VALSARTAN
     Dosage: 320 MILLIGRAM, QD
     Dates: start: 20150327
  14. VALSARTAN DURA 320 MG FILMTABLETTEN [Suspect]
     Active Substance: VALSARTAN
     Dosage: 320 MILLIGRAM, QD
     Dates: start: 20150921
  15. VALSARTAN DURA 320 MG FILMTABLETTEN [Suspect]
     Active Substance: VALSARTAN
     Indication: PRODUCT USED FOR UNKNOWN INDICATION
     Dosage: 320 MILLIGRAM, QD
     Dates: start: 2013
  16. VALSACOR [Suspect]
     Active Substance: VALSARTAN
     Dosage: 320MG/25MG, QD (TAD PHARMA)
     Dates: start: 20181011

REACTIONS (5)
  - Impaired quality of life [Unknown]
  - Disturbance in attention [Unknown]
  - Sleep disorder [Unknown]
  - Mental impairment [Unknown]
  - Fear of disease [Unknown]
